FAERS Safety Report 8619674-4 (Version None)
Quarter: 2012Q3

REPORT INFORMATION
  Report Type: 
  Country: None (occurrence: None)
  Receive Date: 20120824
  Receipt Date: 20120821
  Transmission Date: 20120928
  Serious: Yes (Other)
  Sender: FDA-Public Use
  Company Number: NL-PFIZER INC-2012205542

PATIENT
  Age: 52 Year
  Sex: Female
  Weight: 70 kg

DRUGS (2)
  1. EFFEXOR XR [Suspect]
     Indication: ANXIETY DISORDER
     Dosage: 150 MG, DAILY
     Dates: start: 20060101, end: 20120101
  2. REFUSAL [Suspect]
     Indication: ALCOHOLISM
     Dosage: 250 MG, DAILY
     Dates: start: 20060101, end: 20100101

REACTIONS (1)
  - OPTIC ATROPHY [None]
